FAERS Safety Report 19575527 (Version 1)
Quarter: 2021Q3

REPORT INFORMATION
  Report Type: Spontaneous
  Country: US (occurrence: US)
  Receive Date: 20210717
  Receipt Date: 20210717
  Transmission Date: 20211014
  Serious: No
  Sender: FDA-Public Use
  Company Number: None

PATIENT
  Age: 35 Year
  Sex: Female
  Weight: 67.5 kg

DRUGS (4)
  1. NEUTROGENA ULTRA SHEER BODY MIST SUNSCRN BR^D SPECT SPF 45 (AVO\HOM\OCTI\OCTO\OX) [Suspect]
     Active Substance: AVOBENZONE\HOMOSALATE\OCTISALATE\OCTOCRYLENE\OXYBENZONE
     Indication: SUNBURN
     Dosage: ?          QUANTITY:1 OUNCE(S);?
     Route: 061
  2. VITAMIN C [Concomitant]
     Active Substance: ASCORBIC ACID
  3. NEUTROGENA ULTRA SHEER DRY TOUCH SUNSCREEN BROAD SPECTRUM SPF45 [Suspect]
     Active Substance: AVOBENZONE\HOMOSALATE\OCTISALATE\OCTOCRYLENE\OXYBENZONE
     Indication: SUNBURN
     Dosage: QUANTITY: 1 OUNCES
     Route: 061
  4. VITAMIN E [Concomitant]
     Active Substance: .ALPHA.-TOCOPHEROL

REACTIONS (1)
  - Rash [None]

NARRATIVE: CASE EVENT DATE: 20210706
